FAERS Safety Report 9773728 (Version 3)
Quarter: 2014Q2

REPORT INFORMATION
  Report Type: Report from Study
  Country: CN (occurrence: CN)
  Receive Date: 20131219
  Receipt Date: 20140515
  Transmission Date: 20141212
  Serious: Yes (Hospitalization)
  Sender: FDA-Public Use
  Company Number: CN-B.I. PHARMACEUTICALS,INC./RIDGEFIELD-2013-BI-41066BI

PATIENT
  Age: 46 Year
  Sex: Female
  Weight: 83 kg

DRUGS (1)
  1. BIBW 2992 [Suspect]
     Indication: BREAST CANCER METASTATIC
     Dosage: 40 MG
     Route: 048
     Dates: start: 20120322

REACTIONS (1)
  - Intestinal obstruction [Recovered/Resolved]
